FAERS Safety Report 23214510 (Version 1)
Quarter: 2023Q4

REPORT INFORMATION
  Report Type: Spontaneous
  Country: DE (occurrence: DE)
  Receive Date: 20231121
  Receipt Date: 20231121
  Transmission Date: 20240110
  Serious: Yes (Other)
  Sender: FDA-Public Use
  Company Number: DE-002147023-NVSC2023DE245169

PATIENT

DRUGS (7)
  1. RUXOLITINIB [Suspect]
     Active Substance: RUXOLITINIB
     Indication: Polycythaemia vera
     Dosage: 10 MG, BID (2X DAILY)
     Route: 065
     Dates: start: 2018
  2. HYDROXYUREA [Suspect]
     Active Substance: HYDROXYUREA
     Indication: Essential thrombocythaemia
     Dosage: 1000 MG, QD (DAILY)
     Route: 065
     Dates: end: 2018
  3. HYDROXYUREA [Suspect]
     Active Substance: HYDROXYUREA
     Indication: Polycythaemia vera
  4. ASPIRIN [Concomitant]
     Active Substance: ASPIRIN
     Indication: Essential thrombocythaemia
     Dosage: 100 MG, QD (DAILY)
     Route: 065
     Dates: start: 201507
  5. ASPIRIN [Concomitant]
     Active Substance: ASPIRIN
     Indication: Polycythaemia vera
     Dosage: 50 MG, QD (DAILY)
     Route: 065
  6. ANAGRELIDE [Concomitant]
     Active Substance: ANAGRELIDE
     Indication: Essential thrombocythaemia
     Dosage: UNK
     Route: 065
     Dates: end: 2018
  7. ANAGRELIDE [Concomitant]
     Active Substance: ANAGRELIDE
     Indication: Polycythaemia vera
     Dosage: 0.5 MG, BID (2X DAILY)
     Route: 065

REACTIONS (5)
  - Polycythaemia vera [Recovering/Resolving]
  - Blood erythropoietin decreased [Recovering/Resolving]
  - Haematocrit increased [Recovering/Resolving]
  - Platelet count increased [Recovering/Resolving]
  - Drug intolerance [Unknown]

NARRATIVE: CASE EVENT DATE: 20180101
